FAERS Safety Report 21466222 (Version 2)
Quarter: 2022Q4

REPORT INFORMATION
  Report Type: Spontaneous
  Country: DE (occurrence: DE)
  Receive Date: 20221017
  Receipt Date: 20221026
  Transmission Date: 20230113
  Serious: No
  Sender: FDA-Public Use
  Company Number: DE-PFIZER INC-202201181737

PATIENT
  Sex: Female

DRUGS (1)
  1. MEDROXYPROGESTERONE [Suspect]
     Active Substance: MEDROXYPROGESTERONE
     Indication: Contraception
     Dosage: UNK

REACTIONS (4)
  - Drug dose omission by device [Unknown]
  - Product administration error [Unknown]
  - Device leakage [Unknown]
  - Device occlusion [Unknown]
